FAERS Safety Report 12405835 (Version 1)
Quarter: 2016Q2

REPORT INFORMATION
  Report Type: Spontaneous
  Country: US (occurrence: None)
  Receive Date: 20160525
  Receipt Date: 20160525
  Transmission Date: 20160815
  Serious: No
  Sender: FDA-Public Use
  Company Number: None

PATIENT
  Age: 33 Year
  Sex: Female
  Weight: 64.86 kg

DRUGS (2)
  1. IBUPROFEN. [Concomitant]
     Active Substance: IBUPROFEN
  2. LEVOFLOXACIN, 500 MG [Suspect]
     Active Substance: LEVOFLOXACIN
     Indication: SINUSITIS
     Route: 048
     Dates: start: 20160327, end: 20160328

REACTIONS (9)
  - Tendonitis [None]
  - Insomnia [None]
  - Tendon pain [None]
  - Feeling abnormal [None]
  - Neuralgia [None]
  - Anxiety [None]
  - Dry mouth [None]
  - Vision blurred [None]
  - Joint crepitation [None]

NARRATIVE: CASE EVENT DATE: 20160327
